FAERS Safety Report 7884034-0 (Version None)
Quarter: 2011Q4

REPORT INFORMATION
  Report Type: 
  Country: None (occurrence: None)
  Receive Date: 20111102
  Receipt Date: 20111028
  Transmission Date: 20120403
  Serious: Yes (Death, Hospitalization, Other)
  Sender: FDA-Public Use
  Company Number: PHHY2011JP60608

PATIENT
  Sex: Female
  Weight: 33 kg

DRUGS (6)
  1. NORVASC [Concomitant]
     Indication: HYPERTENSION
     Dosage: 5 MG,
     Route: 048
     Dates: start: 20101018, end: 20110214
  2. MINOCYCLINE HCL [Concomitant]
     Indication: AORTIC ANEURYSM
     Route: 048
     Dates: start: 20110201
  3. ALISKIREN [Suspect]
     Dosage: 150 MG, QD
     Route: 048
     Dates: start: 20101126, end: 20110204
  4. TANATRIL [Concomitant]
     Dosage: 1 DF,
  5. PREDNISOLONE [Concomitant]
     Indication: AORTIC ANEURYSM
     Dosage: 20 MG,
     Route: 048
     Dates: start: 20110201
  6. FAMOTIDINE [Concomitant]
     Dosage: 1 DF,

REACTIONS (9)
  - PYREXIA [None]
  - DIARRHOEA [None]
  - HAEMATOCRIT DECREASED [None]
  - BLOOD POTASSIUM INCREASED [None]
  - BLOOD UREA INCREASED [None]
  - BLOOD PRESSURE DECREASED [None]
  - BLOOD CREATININE INCREASED [None]
  - PEMPHIGOID [None]
  - HAEMOGLOBIN DECREASED [None]
